FAERS Safety Report 6803781-2 (Version None)
Quarter: 2010Q2

REPORT INFORMATION
  Report Type: 
  Country: None (occurrence: None)
  Receive Date: 20100628
  Receipt Date: 20100618
  Transmission Date: 20101027
  Serious: Yes (Hospitalization)
  Sender: FDA-Public Use
  Company Number: US-AMGEN-KDL417553

PATIENT
  Sex: Female
  Weight: 83.5 kg

DRUGS (16)
  1. ENBREL [Suspect]
     Indication: PSORIASIS
     Route: 058
     Dates: start: 20060701
  2. ENBREL [Suspect]
     Indication: PSORIATIC ARTHROPATHY
  3. NORVASC [Concomitant]
  4. BETAPACE [Concomitant]
  5. LASIX [Concomitant]
  6. PREDNISONE [Concomitant]
  7. MULTI-VITAMINS [Concomitant]
  8. METAMUCIL-2 [Concomitant]
     Route: 048
  9. CALCIUM WITH VITAMIN D [Concomitant]
  10. ECOTRIN [Concomitant]
  11. DIOVAN [Concomitant]
  12. ACTONEL [Concomitant]
  13. VICODIN [Concomitant]
  14. SYMBICORT [Concomitant]
     Route: 055
  15. KLOR-CON [Concomitant]
  16. SENOKOT [Concomitant]

REACTIONS (8)
  - ASTHENIA [None]
  - C-REACTIVE PROTEIN INCREASED [None]
  - CHRONIC OBSTRUCTIVE PULMONARY DISEASE [None]
  - HYPERTENSION [None]
  - LEUKOPENIA [None]
  - PRESYNCOPE [None]
  - PSORIATIC ARTHROPATHY [None]
  - WHITE BLOOD CELL COUNT INCREASED [None]
